FAERS Safety Report 16567312 (Version 3)
Quarter: 2021Q2

REPORT INFORMATION
  Report Type: Report from Study
  Country: JP (occurrence: JP)
  Receive Date: 20190712
  Receipt Date: 20210602
  Transmission Date: 20210716
  Serious: Yes (Other)
  Sender: FDA-Public Use
  Company Number: JP-ASTELLAS-2009JP007600

PATIENT
  Age: 43 Year
  Sex: Female
  Weight: 55 kg

DRUGS (61)
  1. PREDNISOLONE. [Suspect]
     Active Substance: PREDNISOLONE
     Route: 048
     Dates: start: 20080126, end: 20080222
  2. PREDNISOLONE. [Suspect]
     Active Substance: PREDNISOLONE
     Route: 048
     Dates: start: 20080422, end: 20080613
  3. PREDNISOLONE. [Suspect]
     Active Substance: PREDNISOLONE
     Route: 048
     Dates: start: 20080816, end: 20081017
  4. PREDNISOLONE. [Suspect]
     Active Substance: PREDNISOLONE
     Route: 048
     Dates: start: 20120714
  5. PL [Concomitant]
     Active Substance: ACETAMINOPHEN\CAFFEINE\PROMETHAZINE\SALICYLAMIDE
     Indication: PHARYNGITIS
     Dosage: UNK UNK, UNKNOWN FREQ.
     Route: 065
     Dates: start: 200805, end: 200805
  6. DASEN [Concomitant]
     Active Substance: SERRAPEPTASE
     Dosage: UNK UNK, UNKNOWN FREQ.
     Route: 065
     Dates: start: 200808, end: 200808
  7. DASEN [Concomitant]
     Active Substance: SERRAPEPTASE
     Dosage: UNK UNK, UNKNOWN FREQ.
     Route: 065
     Dates: start: 200809, end: 200809
  8. TACROLIMUS. [Suspect]
     Active Substance: TACROLIMUS
     Indication: LUPUS NEPHRITIS
     Route: 048
     Dates: start: 20071027
  9. PREDNISOLONE. [Suspect]
     Active Substance: PREDNISOLONE
     Indication: LUPUS NEPHRITIS
     Route: 048
  10. LIPITOR [Concomitant]
     Active Substance: ATORVASTATIN CALCIUM
     Indication: PRODUCT USED FOR UNKNOWN INDICATION
     Route: 048
  11. CELLCEPT [Concomitant]
     Active Substance: MYCOPHENOLATE MOFETIL\MYCOPHENOLATE MOFETIL HYDROCHLORIDE
     Route: 048
     Dates: start: 20131123
  12. ADETPHOS [Concomitant]
     Active Substance: ADENOSINE TRIPHOSPHATE
     Indication: FACIAL PARALYSIS
     Route: 048
     Dates: start: 20090116, end: 20090508
  13. FLOMOX [Concomitant]
     Indication: PHARYNGITIS
     Dosage: UNK UNK, UNKNOWN FREQ.
     Route: 065
     Dates: start: 200805, end: 200805
  14. ISODINE [Concomitant]
     Active Substance: POVIDONE-IODINE
     Indication: PHARYNGITIS
     Dosage: UNK UNK, UNKNOWN FREQ.
     Route: 065
     Dates: start: 2008, end: 2008
  15. PREDNISOLONE. [Suspect]
     Active Substance: PREDNISOLONE
     Route: 048
     Dates: start: 20080223, end: 20080321
  16. PREDNISOLONE. [Suspect]
     Active Substance: PREDNISOLONE
     Route: 048
     Dates: start: 20080614, end: 20080815
  17. PREDNISOLONE. [Suspect]
     Active Substance: PREDNISOLONE
     Route: 048
     Dates: start: 20081018, end: 20100115
  18. MERISLON [Concomitant]
     Active Substance: BETAHISTINE MESILATE
     Indication: PRODUCT USED FOR UNKNOWN INDICATION
     Route: 048
     Dates: end: 20080421
  19. PURSENNIDE [Concomitant]
     Indication: PRODUCT USED FOR UNKNOWN INDICATION
     Route: 048
  20. PL [Concomitant]
     Active Substance: ACETAMINOPHEN\CAFFEINE\PROMETHAZINE\SALICYLAMIDE
     Route: 065
     Dates: start: 2008, end: 2008
  21. FLOMOX [Concomitant]
     Dosage: UNK UNK, UNKNOWN FREQ.
     Route: 065
     Dates: start: 200808, end: 200808
  22. FLOMOX [Concomitant]
     Dosage: UNK UNK, UNKNOWN FREQ.
     Route: 065
     Dates: start: 200809, end: 200809
  23. BLOPRESS [Concomitant]
     Active Substance: CANDESARTAN CILEXETIL
     Indication: PRODUCT USED FOR UNKNOWN INDICATION
     Route: 048
  24. PRIMPERAN [Concomitant]
     Active Substance: METOCLOPRAMIDE HYDROCHLORIDE
     Indication: PRODUCT USED FOR UNKNOWN INDICATION
     Route: 048
     Dates: end: 20080421
  25. BONALON [Concomitant]
     Active Substance: ALENDRONATE SODIUM
     Indication: PROPHYLAXIS
     Route: 048
     Dates: end: 20071228
  26. METHYCOBAL [Concomitant]
     Active Substance: METHYLCOBALAMIN
     Indication: FACIAL PARALYSIS
     Route: 048
     Dates: start: 20081114, end: 20110902
  27. PL [Concomitant]
     Active Substance: ACETAMINOPHEN\CAFFEINE\PROMETHAZINE\SALICYLAMIDE
     Route: 065
     Dates: start: 200807, end: 200807
  28. PL [Concomitant]
     Active Substance: ACETAMINOPHEN\CAFFEINE\PROMETHAZINE\SALICYLAMIDE
     Route: 065
     Dates: start: 2008, end: 2008
  29. FLOMOX [Concomitant]
     Route: 065
     Dates: start: 200807, end: 200807
  30. FLOMOX [Concomitant]
     Route: 065
     Dates: start: 2008, end: 2008
  31. PREDNISOLONE. [Suspect]
     Active Substance: PREDNISOLONE
     Route: 048
     Dates: start: 20110129, end: 20120413
  32. BAYASPIRIN [Concomitant]
     Active Substance: ASPIRIN
     Indication: PROPHYLAXIS
     Route: 048
  33. BAKTAR [Concomitant]
     Active Substance: SULFAMETHOXAZOLE\TRIMETHOPRIM
     Indication: PROPHYLAXIS
     Route: 048
  34. ALOSENN [Concomitant]
     Indication: CONSTIPATION
     Route: 048
     Dates: start: 20070916, end: 20080713
  35. METHYCOBAL [Concomitant]
     Active Substance: METHYLCOBALAMIN
     Dosage: 1.0 MG, ONCE DAILY
     Route: 048
     Dates: start: 20110903
  36. BIOFERMIN [Concomitant]
     Active Substance: DIETARY SUPPLEMENT\PROBIOTICS
     Indication: CONSTIPATION
     Dosage: UNK UNK, UNKNOWN FREQ.
     Route: 048
     Dates: start: 20090612
  37. DASEN [Concomitant]
     Active Substance: SERRAPEPTASE
     Route: 065
     Dates: start: 2008, end: 2008
  38. ISODINE [Concomitant]
     Active Substance: POVIDONE-IODINE
     Dosage: UNK UNK, UNKNOWN FREQ.
     Route: 065
     Dates: start: 2008, end: 2008
  39. PREDNISOLONE. [Suspect]
     Active Substance: PREDNISOLONE
     Route: 048
     Dates: start: 20071027, end: 20071228
  40. PREDNISOLONE. [Suspect]
     Active Substance: PREDNISOLONE
     Route: 048
     Dates: start: 20071229, end: 20080125
  41. PREDNISOLONE. [Suspect]
     Active Substance: PREDNISOLONE
     Route: 048
     Dates: start: 20100116, end: 20110128
  42. GASTER [Concomitant]
     Active Substance: FAMOTIDINE
     Indication: PROPHYLAXIS
     Route: 048
     Dates: end: 20080321
  43. MERISLON [Concomitant]
     Active Substance: BETAHISTINE MESILATE
     Route: 048
     Dates: start: 20080422
  44. ALOSENN [Concomitant]
     Dosage: 0.5 G, ONCE DAILY
     Route: 048
     Dates: start: 20091127
  45. FLOMOX [Concomitant]
     Route: 065
     Dates: start: 2008, end: 2008
  46. DASEN [Concomitant]
     Active Substance: SERRAPEPTASE
     Route: 065
     Dates: start: 2008, end: 2008
  47. PREDNISOLONE. [Suspect]
     Active Substance: PREDNISOLONE
     Route: 048
     Dates: start: 20071027, end: 20071228
  48. PREDNISOLONE. [Suspect]
     Active Substance: PREDNISOLONE
     Route: 048
     Dates: start: 20080322, end: 20080421
  49. PREDNISOLONE. [Suspect]
     Active Substance: PREDNISOLONE
     Route: 048
     Dates: start: 20120414, end: 20120713
  50. DEPAS [Concomitant]
     Indication: PRODUCT USED FOR UNKNOWN INDICATION
     Dosage: 0.5 MG, ONCE DAILY
     Route: 048
     Dates: end: 20080320
  51. BONALON [Concomitant]
     Active Substance: ALENDRONATE SODIUM
     Route: 048
     Dates: start: 20071229
  52. CELLCEPT [Concomitant]
     Active Substance: MYCOPHENOLATE MOFETIL\MYCOPHENOLATE MOFETIL HYDROCHLORIDE
     Route: 048
     Dates: start: 20130630, end: 20131122
  53. PL [Concomitant]
     Active Substance: ACETAMINOPHEN\CAFFEINE\PROMETHAZINE\SALICYLAMIDE
     Dosage: UNK UNK, UNKNOWN FREQ.
     Route: 065
     Dates: start: 200808, end: 200808
  54. DASEN [Concomitant]
     Active Substance: SERRAPEPTASE
     Indication: PHARYNGITIS
     Dosage: UNK UNK, UNKNOWN FREQ.
     Route: 065
     Dates: start: 200805, end: 200805
  55. DASEN [Concomitant]
     Active Substance: SERRAPEPTASE
     Route: 065
     Dates: start: 200807, end: 200807
  56. BENET [Concomitant]
     Active Substance: RISEDRONATE SODIUM
     Indication: PROPHYLAXIS
     Route: 048
     Dates: end: 20071228
  57. GASTER [Concomitant]
     Active Substance: FAMOTIDINE
     Indication: GASTRITIS
     Route: 048
     Dates: start: 20080322
  58. PRIMPERAN [Concomitant]
     Active Substance: METOCLOPRAMIDE HYDROCHLORIDE
     Route: 048
     Dates: start: 20080422
  59. CELLCEPT [Concomitant]
     Active Substance: MYCOPHENOLATE MOFETIL\MYCOPHENOLATE MOFETIL HYDROCHLORIDE
     Indication: LUPUS NEPHRITIS
     Route: 048
     Dates: start: 20091208, end: 20130629
  60. BIOFERMIN [Concomitant]
     Active Substance: DIETARY SUPPLEMENT\PROBIOTICS
     Dosage: 3000, ONCE DAILY
     Route: 048
     Dates: start: 20090710
  61. PL [Concomitant]
     Active Substance: ACETAMINOPHEN\CAFFEINE\PROMETHAZINE\SALICYLAMIDE
     Dosage: UNK UNK, UNKNOWN FREQ.
     Route: 065
     Dates: start: 200809, end: 200809

REACTIONS (7)
  - Facial paralysis [Unknown]
  - Arthralgia [Not Recovered/Not Resolved]
  - Gastritis [Recovering/Resolving]
  - Pharyngitis [Recovering/Resolving]
  - Beta-N-acetyl-D-glucosaminidase increased [Unknown]
  - Iron deficiency anaemia [Recovering/Resolving]
  - Parotitis [Not Recovered/Not Resolved]

NARRATIVE: CASE EVENT DATE: 20071130
